FAERS Safety Report 7811912-0 (Version None)
Quarter: 2011Q4

REPORT INFORMATION
  Report Type: 
  Country: None (occurrence: None)
  Receive Date: 20111013
  Receipt Date: 20111013
  Transmission Date: 20120403
  Serious: Yes (Hospitalization)
  Sender: FDA-Public Use
  Company Number: PHHO2009US15697

PATIENT
  Sex: Female
  Weight: 60.9 kg

DRUGS (2)
  1. GILENYA [Suspect]
     Dosage: UNK
     Route: 048
     Dates: start: 20090810
  2. GILENYA [Suspect]
     Indication: RELAPSING-REMITTING MULTIPLE SCLEROSIS
     Dosage: 1.25 MG, UNK
     Route: 048
     Dates: start: 20081029, end: 20090521

REACTIONS (3)
  - BACK PAIN [None]
  - PYREXIA [None]
  - PYELONEPHRITIS [None]
